FAERS Safety Report 6554993-7 (Version None)
Quarter: 2010Q1

REPORT INFORMATION
  Report Type: 
  Country: None (occurrence: None)
  Receive Date: 20100126
  Receipt Date: 20100126
  Transmission Date: 20100710
  Serious: Yes (Other)
  Sender: FDA-Public Use
  Company Number: None

PATIENT
  Age: 33 Year
  Sex: Male
  Weight: 74.8435 kg

DRUGS (1)
  1. SUBOXONE [Suspect]
     Indication: DRUG ABUSE
     Dosage: TWO PER DAY SL
     Route: 060
     Dates: start: 20100121, end: 20100125

REACTIONS (4)
  - DYSKINESIA [None]
  - FEAR [None]
  - INSOMNIA [None]
  - MUSCLE SPASMS [None]
